FAERS Safety Report 7140498 (Version 16)
Quarter: 2014Q1

REPORT INFORMATION
  Report Type: Report from Study
  Country: CA (occurrence: CA)
  Receive Date: 20091006
  Receipt Date: 20140106
  Transmission Date: 20141002
  Serious: Yes (Hospitalization, Other)
  Sender: FDA-Public Use
  Company Number: PHHY2009CA23789

PATIENT
  Age: 77 Year
  Sex: Female

DRUGS (2)
  1. SANDOSTATIN LAR [Suspect]
     Indication: ACROMEGALY
     Dosage: 30 MG, EVERY 4 WEEKS
     Route: 030
     Dates: start: 20010108
  2. LYRICA [Concomitant]

REACTIONS (14)
  - Confusional state [Unknown]
  - Chondrocalcinosis pyrophosphate [Unknown]
  - Rectal haemorrhage [Unknown]
  - Gastrointestinal haemorrhage [Unknown]
  - Oedema peripheral [Unknown]
  - Intestinal obstruction [Unknown]
  - Polyp [Unknown]
  - Urinary tract infection [Unknown]
  - Cystitis [Unknown]
  - Gastrointestinal carcinoma [Unknown]
  - Arthralgia [Unknown]
  - Pain [Unknown]
  - Influenza [Unknown]
  - Fall [Unknown]
